FAERS Safety Report 9735500 (Version 2)
Quarter: 2015Q3

REPORT INFORMATION
  Report Type: Spontaneous
  Country: US (occurrence: US)
  Receive Date: 20131206
  Receipt Date: 20150804
  Transmission Date: 20151125
  Serious: No
  Sender: FDA-Public Use
  Company Number: US-GILEAD-2009-0023374

PATIENT
  Age: 62 Year
  Sex: Female
  Weight: 60.33 kg

DRUGS (14)
  1. LETAIRIS [Suspect]
     Active Substance: AMBRISENTAN
     Indication: PULMONARY ARTERIAL HYPERTENSION
     Route: 048
     Dates: start: 20090610
  2. REVATIO [Concomitant]
     Active Substance: SILDENAFIL CITRATE
  3. CLONIDINE. [Concomitant]
     Active Substance: CLONIDINE
  4. COLACE [Concomitant]
     Active Substance: DOCUSATE SODIUM
  5. VITAMIN C [Concomitant]
     Active Substance: ASCORBIC ACID
  6. K-DUR [Concomitant]
     Active Substance: POTASSIUM CHLORIDE
  7. TRAZODONE [Concomitant]
     Active Substance: TRAZODONE HYDROCHLORIDE
  8. LEVOTHYROXINE. [Concomitant]
     Active Substance: LEVOTHYROXINE
  9. MORPHINE [Concomitant]
     Active Substance: MORPHINE
  10. DIAZEPAM. [Concomitant]
     Active Substance: DIAZEPAM
  11. VITAMIN B12 [Concomitant]
     Active Substance: CYANOCOBALAMIN
  12. WARFARIN [Concomitant]
     Active Substance: WARFARIN
  13. METOLAZONE. [Concomitant]
     Active Substance: METOLAZONE
  14. SPIRONOLACTONE. [Concomitant]
     Active Substance: SPIRONOLACTONE

REACTIONS (4)
  - Oral pain [Recovered/Resolved]
  - Hyperaesthesia [Not Recovered/Not Resolved]
  - Headache [Recovered/Resolved]
  - Myalgia [Recovered/Resolved]

NARRATIVE: CASE EVENT DATE: 20090708
